FAERS Safety Report 9475530 (Version 1)
Quarter: 2013Q3

REPORT INFORMATION
  Report Type: Spontaneous
  Country: FR (occurrence: FR)
  Receive Date: 20130826
  Receipt Date: 20130826
  Transmission Date: 20140515
  Serious: Yes (Hospitalization)
  Sender: FDA-Public Use
  Company Number: FR-009507513-1308FRA007288

PATIENT
  Age: 66 Year
  Sex: Female

DRUGS (3)
  1. INEGY [Suspect]
     Dosage: 1 DF, QD
     Route: 048
     Dates: start: 201007, end: 20130719
  2. ARIMIDEX [Suspect]
     Dosage: 1 MG, QD
     Route: 048
     Dates: start: 201201, end: 20130719
  3. LEVOTHYROX [Concomitant]
     Dosage: UNK
     Dates: start: 2006

REACTIONS (1)
  - Thrombotic thrombocytopenic purpura [Not Recovered/Not Resolved]
